FAERS Safety Report 15209428 (Version 3)
Quarter: 2019Q4

REPORT INFORMATION
  Report Type: Spontaneous
  Country: DE (occurrence: DE)
  Receive Date: 20180727
  Receipt Date: 20191004
  Transmission Date: 20200122
  Serious: Yes (Death, Life-Threatening, Hospitalization, Other)
  Sender: FDA-Public Use
  Company Number: DE-MYLANLABS-2018M1057330

PATIENT
  Age: 92 Year
  Sex: Female

DRUGS (25)
  1. NOVAMINSULFON [Suspect]
     Active Substance: METAMIZOLE
     Indication: ANALGESIC THERAPY
  2. HUMALOG [Concomitant]
     Active Substance: INSULIN LISPRO
     Dosage: INSULIN NACH SCHEMA
  3. SIMVASTATIN. [Concomitant]
     Active Substance: SIMVASTATIN
     Dosage: 20 MILLIGRAM, QD (0-0-1-0)
     Route: 048
  4. LEVEMIR [Concomitant]
     Active Substance: INSULIN DETEMIR
     Indication: PRODUCT USED FOR UNKNOWN INDICATION
     Dosage: IE (ANTIDOTA - IE NACH BEDARF)
     Route: 058
  5. TORASEMID [Concomitant]
     Active Substance: TORSEMIDE
     Dosage: 20 MILLIGRAM, QD (1-1-0-0)
     Route: 048
  6. SPIRONOLACTONE. [Concomitant]
     Active Substance: SPIRONOLACTONE
     Dosage: 25 MILLIGRAM, QD (1-0-0-0)
     Route: 048
  7. RISPERIDONE. [Suspect]
     Active Substance: RISPERIDONE
     Indication: PRODUCT USED FOR UNKNOWN INDICATION
     Dosage: 0.5 MG, QD (1-0-0-0)
     Route: 048
     Dates: start: 20180119
  8. RISPERIDONE. [Suspect]
     Active Substance: RISPERIDONE
     Dosage: 0.5 MG, QD
     Route: 048
     Dates: start: 20180122
  9. ERGENYL [Suspect]
     Active Substance: VALPROIC ACID
     Indication: PRODUCT USED FOR UNKNOWN INDICATION
     Dosage: 1600 MG, QD
     Route: 042
     Dates: start: 20180119, end: 20180124
  10. PIPAMPERONE [Suspect]
     Active Substance: PIPAMPERONE
     Dosage: 20 MG, QD
     Route: 048
     Dates: start: 20180122
  11. CLEXANE [Concomitant]
     Active Substance: ENOXAPARIN SODIUM
     Indication: ANTICOAGULANT THERAPY
     Dosage: 0.8 MILLILITER, QD
     Route: 058
     Dates: start: 20180118, end: 20180124
  12. APIXABAN [Concomitant]
     Active Substance: APIXABAN
     Dosage: 10 MILLIGRAM, QD (1-0-1-0)
     Route: 048
  13. STEROFUNDIN [Concomitant]
     Active Substance: CALCIUM CHLORIDE\MAGNESIUM CHLORIDE\POTASSIUM CHLORIDE\SODIUM ACETATE\SODIUM CHLORIDE
     Indication: PRODUCT USED FOR UNKNOWN INDICATION
     Dosage: 1500 MILLILITER, QD
     Route: 042
     Dates: start: 20180118, end: 20180124
  14. STEROFUNDIN [Concomitant]
     Active Substance: CALCIUM CHLORIDE\MAGNESIUM CHLORIDE\POTASSIUM CHLORIDE\SODIUM ACETATE\SODIUM CHLORIDE
     Dosage: 1500 MILLIGRAM, QD
     Route: 042
     Dates: start: 20180118, end: 20180124
  15. CARVEDILOL. [Concomitant]
     Active Substance: CARVEDILOL
     Dosage: 2 DOSAGE FORM, QD (1-0-1-0)
     Route: 048
  16. L-THYROXIN                         /00068002/ [Concomitant]
     Active Substance: LEVOTHYROXINE SODIUM
     Dosage: 150 MILLIGRAM, QD (1-0-0-0)
     Route: 048
  17. IDEOS [Concomitant]
     Active Substance: CALCIUM CARBONATE\CHOLECALCIFEROL
     Dosage: 1 DOSAGE FORM, QD (1-0-0-0)
     Route: 048
  18. ENALAPRIL [Concomitant]
     Active Substance: ENALAPRIL
     Dosage: 5 MILLIGRAM, QD (1-0-0-0)
     Route: 048
  19. DIGITOXIN [Concomitant]
     Active Substance: DIGITOXIN
     Dosage: 0.07 MILLIGRAM, QD (1-0-0-0)
     Route: 048
  20. PIPAMPERONE [Suspect]
     Active Substance: PIPAMPERONE
     Dosage: 80 MG, QD
     Route: 048
     Dates: start: 20180123, end: 20180124
  21. NOVAMINSULFON [Suspect]
     Active Substance: METAMIZOLE
     Indication: PAIN
     Dosage: 2 G, QD (500 MG 1-1-1-1)
     Route: 042
     Dates: start: 20180121, end: 20180124
  22. CLEXANE [Concomitant]
     Active Substance: ENOXAPARIN SODIUM
     Indication: COAGULOPATHY
     Dosage: 0.8 MILLIGRAM, QD
     Route: 058
     Dates: start: 20180118, end: 20180124
  23. PIPAMPERONE [Suspect]
     Active Substance: PIPAMPERONE
     Indication: PRODUCT USED FOR UNKNOWN INDICATION
     Dosage: 40 MG, QD (1-0-1-0)
     Route: 048
     Dates: start: 20180119
  24. RISPERIDONE. [Suspect]
     Active Substance: RISPERIDONE
     Dosage: 1 MG, QD
     Route: 048
     Dates: start: 20180123, end: 20180124
  25. MOVICOL [Concomitant]
     Active Substance: POLYETHYLENE GLYCOL 3350\POTASSIUM CHLORIDE\SODIUM BICARBONATE\SODIUM CHLORIDE
     Dosage: 2 DOSAGE FORM, QD (1-0-1-)
     Route: 048

REACTIONS (1)
  - Death [Fatal]

NARRATIVE: CASE EVENT DATE: 20180125
